FAERS Safety Report 23695093 (Version 2)
Quarter: 2024Q2

REPORT INFORMATION
  Report Type: Spontaneous
  Country: SK (occurrence: SK)
  Receive Date: 20240402
  Receipt Date: 20240422
  Transmission Date: 20240716
  Serious: Yes (Hospitalization)
  Sender: FDA-Public Use
  Company Number: SK-NOVOPROD-1195546

PATIENT
  Age: 64 Year
  Sex: Male
  Weight: 86 kg

DRUGS (3)
  1. OZEMPIC [Suspect]
     Active Substance: SEMAGLUTIDE
     Indication: Type 2 diabetes mellitus
     Dosage: 0.25 MG
     Dates: start: 202303
  2. OZEMPIC [Suspect]
     Active Substance: SEMAGLUTIDE
     Dosage: 1 MG
     Dates: start: 202309, end: 202403
  3. OZEMPIC [Suspect]
     Active Substance: SEMAGLUTIDE
     Dosage: 0.5 MG
     Dates: start: 202304, end: 202309

REACTIONS (1)
  - Oedematous pancreatitis [Not Recovered/Not Resolved]

NARRATIVE: CASE EVENT DATE: 20240315
